FAERS Safety Report 15255526 (Version 3)
Quarter: 2019Q3

REPORT INFORMATION
  Report Type: Spontaneous
  Country: JP (occurrence: JP)
  Receive Date: 20180808
  Receipt Date: 20190925
  Transmission Date: 20191004
  Serious: Yes (Hospitalization)
  Sender: FDA-Public Use
  Company Number: JP-EISAI MEDICAL RESEARCH-EC-2018-043760

PATIENT
  Sex: Male
  Weight: 70 kg

DRUGS (2)
  1. LENVIMA [Suspect]
     Active Substance: LENVATINIB
     Indication: HEPATOCELLULAR CARCINOMA
     Route: 048
     Dates: start: 20180717, end: 20180719
  2. LENVIMA [Suspect]
     Active Substance: LENVATINIB
     Route: 048
     Dates: start: 20180802, end: 20180829

REACTIONS (1)
  - Diverticulum intestinal haemorrhagic [Recovered/Resolved]

NARRATIVE: CASE EVENT DATE: 20180719
